FAERS Safety Report 6936145-1 (Version None)
Quarter: 2010Q3

REPORT INFORMATION
  Report Type: 
  Country: None (occurrence: None)
  Receive Date: 20100823
  Receipt Date: 20100813
  Transmission Date: 20110219
  Serious: Yes (Other)
  Sender: FDA-Public Use
  Company Number: DE-ABBOTT-10P-062-0663928-00

PATIENT
  Sex: Female

DRUGS (1)
  1. ERGENYL CHRONO [Suspect]
     Indication: BIPOLAR I DISORDER
     Route: 048

REACTIONS (1)
  - TUBULOINTERSTITIAL NEPHRITIS [None]
